FAERS Safety Report 24958193 (Version 1)
Quarter: 2025Q1

REPORT INFORMATION
  Report Type: Spontaneous
  Country: IN (occurrence: IN)
  Receive Date: 20250212
  Receipt Date: 20250212
  Transmission Date: 20250409
  Serious: Yes (Death)
  Sender: ROCHE
  Company Number: IN-ROCHE-10000137229

PATIENT
  Age: 51 Year
  Sex: Female
  Weight: 46 kg

DRUGS (1)
  1. POLIVY [Suspect]
     Active Substance: POLATUZUMAB VEDOTIN-PIIQ
     Indication: Non-Hodgkin^s lymphoma
     Route: 042
     Dates: start: 20241120

REACTIONS (5)
  - Off label use [Unknown]
  - Off label use [Unknown]
  - Asthenia [Unknown]
  - Drug intolerance [Unknown]
  - Neoplasm malignant [Fatal]
